FAERS Safety Report 8297444-7 (Version None)
Quarter: 2012Q2

REPORT INFORMATION
  Report Type: 
  Country: None (occurrence: None)
  Receive Date: 20120419
  Receipt Date: 20120416
  Transmission Date: 20120825
  Serious: Yes (Other)
  Sender: FDA-Public Use
  Company Number: US-PFIZER INC-2012094174

PATIENT
  Sex: Female
  Weight: 154 kg

DRUGS (4)
  1. DEPO-PROVERA [Suspect]
     Indication: MENORRHAGIA
  2. DEPO-PROVERA [Suspect]
     Indication: OFF LABEL USE
     Dosage: UNK, EVERY 3 MONTHS
     Route: 030
  3. SIMVASTATIN [Concomitant]
     Indication: BLOOD CHOLESTEROL INCREASED
     Dosage: UNK
  4. HUMIRA [Concomitant]
     Indication: PSORIASIS
     Dosage: UNK

REACTIONS (2)
  - GLUCOSE TOLERANCE IMPAIRED [None]
  - BLOOD GLUCOSE INCREASED [None]
